FAERS Safety Report 25575517 (Version 2)
Quarter: 2025Q3

REPORT INFORMATION
  Report Type: Spontaneous
  Country: GB (occurrence: GB)
  Receive Date: 20250718
  Receipt Date: 20250718
  Transmission Date: 20251021
  Serious: Yes (Other)
  Sender: TEVA
  Company Number: GB-MHRA-36081864

PATIENT
  Sex: Female

DRUGS (1)
  1. DIAZEPAM [Suspect]
     Active Substance: DIAZEPAM
     Indication: Product used for unknown indication
     Route: 065

REACTIONS (15)
  - Depressed level of consciousness [Unknown]
  - Fatigue [Unknown]
  - Brain fog [Unknown]
  - Speech disorder [Unknown]
  - Drooling [Unknown]
  - Dizziness [Unknown]
  - Hallucination [Unknown]
  - Irritability [Unknown]
  - Somnolence [Unknown]
  - Amnesia [Unknown]
  - Drug dependence [Unknown]
  - Confusional state [Unknown]
  - Confusional state [Unknown]
  - Dyspnoea [Unknown]
  - Sedation complication [Unknown]
